FAERS Safety Report 22057970 (Version 1)
Quarter: 2023Q1

REPORT INFORMATION
  Report Type: Report from Study
  Country: FR (occurrence: None)
  Receive Date: 20230303
  Receipt Date: 20230303
  Transmission Date: 20230418
  Serious: Yes (Death, Other)
  Sender: FDA-Public Use
  Company Number: FR-ADIENNEP-2023AD000196

PATIENT

DRUGS (6)
  1. THIOTEPA [Suspect]
     Active Substance: THIOTEPA
     Indication: Autologous haematopoietic stem cell transplant
     Dosage: 250 MG/M2 PER DAY, FROM DAY 9 TO DAY 7
  2. BUSULFAN [Suspect]
     Active Substance: BUSULFAN
     Indication: Autologous haematopoietic stem cell transplant
     Dosage: 3.2 MG/KG PER DAY,FROM DAY 6 TO DAY 5
  3. BUSULFAN [Suspect]
     Active Substance: BUSULFAN
     Indication: Autologous haematopoietic stem cell transplant
     Dosage: 1.6 MG/KG ON DAY 4
  4. CYCLOPHOSPHAMIDE [Suspect]
     Active Substance: CYCLOPHOSPHAMIDE
     Indication: Autologous haematopoietic stem cell transplant
     Dosage: 60 MG/KG PER DAY, ON DAYS 3 AND 2
  5. CLONAZEPAM [Suspect]
     Active Substance: CLONAZEPAM
     Indication: Prophylaxis
     Dosage: 0.5 MG/12 H
  6. MESNA [Suspect]
     Active Substance: MESNA
     Indication: Prophylaxis

REACTIONS (3)
  - Septic shock [Fatal]
  - Infection [Unknown]
  - Fungal infection [Unknown]
